FAERS Safety Report 9116714 (Version 1)
Quarter: 2013Q1

REPORT INFORMATION
  Report Type: Spontaneous
  Country: CN (occurrence: CN)
  Receive Date: 20130225
  Receipt Date: 20130225
  Transmission Date: 20140127
  Serious: Yes (Hospitalization, Other)
  Sender: FDA-Public Use
  Company Number: CN-PFIZER INC-2013066086

PATIENT
  Age: 48 Year
  Sex: Male

DRUGS (1)
  1. SUTENT [Suspect]
     Indication: GASTROINTESTINAL STROMAL TUMOUR
     Dosage: 50 MG, 1X/DAY
     Route: 048
     Dates: start: 20100310, end: 20130209

REACTIONS (3)
  - Gastric haemorrhage [Recovering/Resolving]
  - Shock [Recovering/Resolving]
  - Syncope [Recovering/Resolving]
